FAERS Safety Report 23874661 (Version 2)
Quarter: 2024Q2

REPORT INFORMATION
  Report Type: Spontaneous
  Country: FR (occurrence: FR)
  Receive Date: 20240520
  Receipt Date: 20240528
  Transmission Date: 20240716
  Serious: Yes (Hospitalization)
  Sender: FDA-Public Use
  Company Number: FR-AMERICAN REGENT INC-2024001885

PATIENT
  Age: 43 Year
  Sex: Female
  Weight: 70 kg

DRUGS (1)
  1. FERINJECT [Suspect]
     Active Substance: FERRIC CARBOXYMALTOSE
     Indication: Anaemia
     Dosage: 1000 UNIT UNKNOWN (1 IN 1 TOTAL)
     Dates: start: 20220908, end: 20220908

REACTIONS (2)
  - Hysterectomy [Unknown]
  - Off label use [Unknown]

NARRATIVE: CASE EVENT DATE: 20220908
